FAERS Safety Report 7733495-6 (Version None)
Quarter: 2011Q3

REPORT INFORMATION
  Report Type: 
  Country: None (occurrence: None)
  Receive Date: 20110907
  Receipt Date: 20110907
  Transmission Date: 20111222
  Serious: Yes (Other)
  Sender: FDA-Public Use
  Company Number: None

PATIENT
  Sex: Male
  Weight: 84.821 kg

DRUGS (2)
  1. SIMVASTATIN [Suspect]
  2. AMIODARONE HCL [Concomitant]

REACTIONS (2)
  - PAIN [None]
  - MUSCLE DISORDER [None]
